FAERS Safety Report 17324509 (Version 1)
Quarter: 2020Q1

REPORT INFORMATION
  Report Type: Spontaneous
  Country: SE (occurrence: SE)
  Receive Date: 20200127
  Receipt Date: 20200127
  Transmission Date: 20200409
  Serious: Yes (Hospitalization)
  Sender: FDA-Public Use
  Company Number: SE-MYLANLABS-2020M1008486

PATIENT
  Age: 18 Year
  Sex: Female

DRUGS (3)
  1. MELATONIN [Suspect]
     Active Substance: MELATONIN
     Indication: PRODUCT USED FOR UNKNOWN INDICATION
     Dosage: 5 MELATONIN 2 MG KANSKE
     Route: 048
     Dates: start: 20180329, end: 20180329
  2. ALVEDON [Suspect]
     Active Substance: ACETAMINOPHEN
     Indication: PRODUCT USED FOR UNKNOWN INDICATION
     Dosage: 2 ALVEDON
     Route: 048
     Dates: start: 20180329, end: 20180329
  3. LERGIGAN (PROMETHAZINE HYDROCHLORIDE) [Suspect]
     Active Substance: PROMETHAZINE HYDROCHLORIDE
     Indication: PRODUCT USED FOR UNKNOWN INDICATION
     Dosage: 8 ELLER MER LERGIGAN 25MG
     Route: 048
     Dates: start: 20180329, end: 20180329

REACTIONS (2)
  - Intentional self-injury [Unknown]
  - Intentional overdose [Unknown]

NARRATIVE: CASE EVENT DATE: 20180329
